FAERS Safety Report 9380715 (Version 1)
Quarter: 2013Q3

REPORT INFORMATION
  Report Type: Spontaneous
  Country: US (occurrence: US)
  Receive Date: 20130702
  Receipt Date: 20130702
  Transmission Date: 20140515
  Serious: No
  Sender: FDA-Public Use
  Company Number: US-JNJFOC-20130612901

PATIENT
  Sex: Female

DRUGS (2)
  1. FENTANYL [Suspect]
     Indication: ARTHRALGIA
     Route: 062
     Dates: start: 2012, end: 2013
  2. FENTANYL [Suspect]
     Indication: ARTHRALGIA
     Route: 062
     Dates: start: 2013

REACTIONS (6)
  - Gait disturbance [Unknown]
  - Drug ineffective [Recovered/Resolved]
  - Wrong technique in drug usage process [Not Recovered/Not Resolved]
  - Local swelling [Unknown]
  - Secretion discharge [Unknown]
  - Product quality issue [Unknown]
